FAERS Safety Report 23158656 (Version 2)
Quarter: 2023Q4

REPORT INFORMATION
  Report Type: Spontaneous
  Country: US (occurrence: US)
  Receive Date: 20231108
  Receipt Date: 20231120
  Transmission Date: 20240110
  Serious: No
  Sender: FDA-Public Use
  Company Number: US-PFIZER INC-202300309257

PATIENT
  Age: 4 Year
  Sex: Male
  Weight: 13.7 kg

DRUGS (16)
  1. GENOTROPIN [Suspect]
     Active Substance: SOMATROPIN
     Indication: Growth disorder
     Dosage: 0.6 MG, DAILY
     Route: 058
  2. ALBUTEROL SULFATE [Concomitant]
     Active Substance: ALBUTEROL SULFATE
     Dosage: UNK
  3. AMLODIPINE [Concomitant]
     Active Substance: AMLODIPINE BESYLATE
     Dosage: UNK
  4. AZITHROMYCIN [Concomitant]
     Active Substance: AZITHROMYCIN
     Dosage: UNK
  5. CHLOROTHIAZIDE [Concomitant]
     Active Substance: CHLOROTHIAZIDE
     Dosage: UNK
  6. CYPROHEPTADINE [Concomitant]
     Active Substance: CYPROHEPTADINE
     Dosage: UNK
  7. FLONASE [Concomitant]
     Active Substance: FLUTICASONE PROPIONATE
     Dosage: UNK
  8. LISINOPRIL [Concomitant]
     Active Substance: LISINOPRIL
     Dosage: UNK
  9. MELATONIN [Concomitant]
     Active Substance: MELATONIN
     Dosage: UNK
  10. DULERA [Concomitant]
     Active Substance: FORMOTEROL FUMARATE DIHYDRATE\MOMETASONE FUROATE
     Dosage: UNK
  11. SINGULAIR [Concomitant]
     Active Substance: MONTELUKAST SODIUM
     Dosage: UNK
  12. OMEPRAZOLE [Concomitant]
     Active Substance: OMEPRAZOLE
     Dosage: UNK
  13. MIRALAX [Concomitant]
     Active Substance: POLYETHYLENE GLYCOL 3350
     Dosage: UNK
  14. SENOKOT [Concomitant]
     Active Substance: SENNOSIDES
     Dosage: UNK
  15. SODIUM CHLORIDE [Concomitant]
     Active Substance: SODIUM CHLORIDE
     Dosage: UNK
  16. SOMATROPIN [Concomitant]
     Active Substance: SOMATROPIN
     Dosage: UNK

REACTIONS (2)
  - Accidental overdose [Unknown]
  - Device malfunction [Unknown]
